FAERS Safety Report 22101991 (Version 2)
Quarter: 2023Q1

REPORT INFORMATION
  Report Type: Spontaneous
  Country: US (occurrence: US)
  Receive Date: 20230316
  Receipt Date: 20230327
  Transmission Date: 20230417
  Serious: No
  Sender: FDA-Public Use
  Company Number: US-GSK-US2023AMR038084

PATIENT
  Age: 39 Year
  Sex: Female

DRUGS (2)
  1. NUCALA [Suspect]
     Active Substance: MEPOLIZUMAB
     Indication: Asthma
     Dosage: UNK
     Route: 058
     Dates: start: 20150203
  2. NUCALA [Suspect]
     Active Substance: MEPOLIZUMAB
     Indication: Eosinophilic granulomatosis with polyangiitis

REACTIONS (10)
  - Gastric infection [Not Recovered/Not Resolved]
  - Illness [Not Recovered/Not Resolved]
  - Pain [Unknown]
  - Colitis [Not Recovered/Not Resolved]
  - Insomnia [Recovered/Resolved]
  - Sleep disorder [Recovered/Resolved]
  - Emotional distress [Unknown]
  - Malaise [Unknown]
  - Vasculitis [Unknown]
  - Musculoskeletal disorder [Unknown]

NARRATIVE: CASE EVENT DATE: 20230322
